FAERS Safety Report 10358800 (Version 3)
Quarter: 2014Q3

REPORT INFORMATION
  Report Type: Spontaneous
  Country: BR (occurrence: BR)
  Receive Date: 20140804
  Receipt Date: 20140825
  Transmission Date: 20150326
  Serious: Yes (Death, Other)
  Sender: FDA-Public Use
  Company Number: BR-ROCHE-1444590

PATIENT
  Age: 11 Year
  Sex: Male

DRUGS (1)
  1. VESANOID [Suspect]
     Active Substance: TRETINOIN
     Indication: LEUKAEMIA
     Route: 065
     Dates: start: 20140730, end: 2014

REACTIONS (4)
  - Retinoic acid syndrome [Not Recovered/Not Resolved]
  - Haemorrhage [Unknown]
  - Respiratory disorder [Not Recovered/Not Resolved]
  - Brain death [Fatal]

NARRATIVE: CASE EVENT DATE: 20140731
